FAERS Safety Report 6444680-8 (Version None)
Quarter: 2009Q4

REPORT INFORMATION
  Report Type: 
  Country: None (occurrence: None)
  Receive Date: 20091116
  Receipt Date: 20091116
  Transmission Date: 20100525
  Serious: No
  Sender: FDA-Public Use
  Company Number: None

PATIENT
  Sex: Female
  Weight: 57.1532 kg

DRUGS (2)
  1. ACTONEL [Suspect]
     Indication: OSTEOPOROSIS
     Dosage: 35 MG WEEKLY
     Dates: start: 20061001
  2. BONIVA [Suspect]
     Dosage: 150 MG MONTHLY
     Dates: start: 20090101

REACTIONS (3)
  - ABDOMINAL DISCOMFORT [None]
  - ENDODONTIC PROCEDURE [None]
  - OSTEONECROSIS [None]
